FAERS Safety Report 5108010-6 (Version None)
Quarter: 2006Q3

REPORT INFORMATION
  Report Type: 
  Country: None (occurrence: None)
  Receive Date: 20060914
  Receipt Date: 20060901
  Transmission Date: 20061208
  Serious: Yes (Hospitalization, Other)
  Sender: FDA-Public Use
  Company Number: 2006106608

PATIENT
  Age: 54 Year
  Sex: Male

DRUGS (4)
  1. REVATIO [Suspect]
     Indication: DRUG USE FOR UNKNOWN INDICATION
     Dates: start: 20060519, end: 20060101
  2. REVATIO [Suspect]
     Indication: PULMONARY HYPERTENSION
     Dates: start: 20060519, end: 20060101
  3. TRACLEER [Concomitant]
  4. BOSENTAN [Concomitant]

REACTIONS (5)
  - CONDITION AGGRAVATED [None]
  - HEADACHE [None]
  - HYPOTENSION [None]
  - LIVER DISORDER [None]
  - NASAL CONGESTION [None]
